FAERS Safety Report 5179668-0 (Version None)
Quarter: 2006Q4

REPORT INFORMATION
  Report Type: 
  Country: None (occurrence: None)
  Receive Date: 20061211
  Receipt Date: 20061205
  Transmission Date: 20070319
  Serious: Yes (Hospitalization, Other)
  Sender: FDA-Public Use
  Company Number: 163-20785-06110833

PATIENT
  Sex: Male
  Weight: 102.0593 kg

DRUGS (3)
  1. THALOMID [Suspect]
     Indication: MULTIPLE MYELOMA
     Dosage: 200 - 400 MG DAILY, ORAL
     Route: 048
     Dates: start: 20061115
  2. DEXAMETHASONE TAB [Suspect]
     Indication: MULTIPLE MYELOMA
  3. ZOMETA [Concomitant]

REACTIONS (7)
  - BALANCE DISORDER [None]
  - CONVULSION [None]
  - FAECAL INCONTINENCE [None]
  - FALL [None]
  - PARAESTHESIA [None]
  - SENSORY LOSS [None]
  - URINARY INCONTINENCE [None]
